FAERS Safety Report 5257096-7 (Version None)
Quarter: 2007Q1

REPORT INFORMATION
  Report Type: 
  Country: None (occurrence: None)
  Receive Date: 20070307
  Receipt Date: 20070306
  Transmission Date: 20070707
  Serious: Yes (Hospitalization, Other)
  Sender: FDA-Public Use
  Company Number: AU-BRISTOL-MYERS SQUIBB COMPANY-13605209

PATIENT
  Age: 83 Year
  Sex: Female
  Weight: 59 kg

DRUGS (7)
  1. PACLITAXEL [Suspect]
     Indication: NON-SMALL CELL LUNG CANCER
     Route: 042
     Dates: start: 20061016, end: 20061016
  2. CARBOPLATIN [Suspect]
     Indication: NON-SMALL CELL LUNG CANCER
     Route: 042
     Dates: start: 20061016, end: 20061016
  3. NORVASC [Concomitant]
     Route: 048
     Dates: start: 19950601
  4. ACETAMINOPHEN W/ CODEINE [Concomitant]
     Route: 048
     Dates: start: 20060816
  5. PLAVIX [Concomitant]
     Route: 048
     Dates: start: 19950601
  6. TRITACE [Concomitant]
     Route: 048
     Dates: start: 19950601
  7. PRAVACHOL [Concomitant]
     Route: 048
     Dates: start: 19950601

REACTIONS (3)
  - FALL [None]
  - FEMORAL NECK FRACTURE [None]
  - NEUROPATHY PERIPHERAL [None]
